FAERS Safety Report 9748558 (Version 2)
Quarter: 2014Q2

REPORT INFORMATION
  Report Type: Spontaneous
  Country: DK (occurrence: CH)
  Receive Date: 20131212
  Receipt Date: 20140423
  Transmission Date: 20141212
  Serious: Yes (Other)
  Sender: FDA-Public Use
  Company Number: CH-FRI-1000052184

PATIENT
  Age: 0 Year
  Sex: Female
  Weight: 2.38 kg

DRUGS (3)
  1. ESCITALOPRAM [Suspect]
     Dosage: 5 MG
     Route: 064
     Dates: start: 20130122, end: 20130129
  2. ESCITALOPRAM [Suspect]
     Dosage: 10 MG
     Route: 048
     Dates: start: 20130129, end: 20130225
  3. ABILIFY [Suspect]
     Dosage: 10 MG
     Route: 064
     Dates: start: 20130211, end: 2013

REACTIONS (2)
  - Foetal growth restriction [Unknown]
  - Foetal exposure during pregnancy [Recovered/Resolved]
